FAERS Safety Report 4501031-3 (Version None)
Quarter: 2004Q4

REPORT INFORMATION
  Report Type: 
  Country: None (occurrence: None)
  Receive Date: 20041109
  Receipt Date: 20041028
  Transmission Date: 20050328
  Serious: Yes (Hospitalization)
  Sender: FDA-Public Use
  Company Number: US_0409105448

PATIENT
  Age: 37 Year
  Sex: Female
  Weight: 86 kg

DRUGS (8)
  1. DULOXETINE HYDROCHLORIDE [Suspect]
     Indication: MAJOR DEPRESSION
     Dosage: 60 MG/ 1 DAY
     Dates: start: 20040827, end: 20040908
  2. ADVIL [Concomitant]
  3. SOMA [Concomitant]
  4. VICODIN [Concomitant]
  5. SYNTHROID [Concomitant]
  6. TRANXENE [Concomitant]
  7. LAMICTAL [Concomitant]
  8. LITHIUM [Concomitant]

REACTIONS (5)
  - DRUG INEFFECTIVE [None]
  - RELATIONSHIP BREAKDOWN [None]
  - ROAD TRAFFIC ACCIDENT [None]
  - SUICIDE ATTEMPT [None]
  - TREATMENT NONCOMPLIANCE [None]
